FAERS Safety Report 11774329 (Version 2)
Quarter: 2015Q4

REPORT INFORMATION
  Report Type: Report from Study
  Country: IL (occurrence: IL)
  Receive Date: 20151124
  Receipt Date: 20151228
  Transmission Date: 20160304
  Serious: Yes (Hospitalization, Other)
  Sender: FDA-Public Use
  Company Number: IL-BAYER-2015-473539

PATIENT
  Sex: Male
  Weight: 46.7 kg

DRUGS (3)
  1. RADIUM-223 DICHLORIDE [Suspect]
     Active Substance: RADIUM RA-223 DICHLORIDE
     Indication: METASTASES TO BONE
  2. ADDITIONAL STUDY MEDICATION [Suspect]
     Active Substance: UNSPECIFIED INGREDIENT
     Indication: NEUROENDOCRINE TUMOUR
     Dosage: 90 MG/M2, OW
     Route: 042
     Dates: start: 20151011, end: 20151115
  3. RADIUM-223 DICHLORIDE [Suspect]
     Active Substance: RADIUM RA-223 DICHLORIDE
     Indication: NEUROENDOCRINE TUMOUR
     Dosage: 50 KBQ/KG ONCE A MONTH
     Route: 042
     Dates: start: 20151115

REACTIONS (3)
  - Neutropenia [None]
  - Femoral neck fracture [Not Recovered/Not Resolved]
  - Pneumonia [None]

NARRATIVE: CASE EVENT DATE: 20151220
